FAERS Safety Report 19375358 (Version 1)
Quarter: 2021Q2

REPORT INFORMATION
  Report Type: Spontaneous
  Country: DE (occurrence: DE)
  Receive Date: 20210604
  Receipt Date: 20210604
  Transmission Date: 20210717
  Serious: Yes (Death, Other)
  Sender: FDA-Public Use
  Company Number: DE-PFIZER INC-2021597296

PATIENT
  Age: 7 Day
  Sex: Female
  Weight: 4 kg

DRUGS (1)
  1. CYTOTEC [Suspect]
     Active Substance: MISOPROSTOL
     Indication: PROLONGED PREGNANCY
     Dosage: FREQ:{TOTAL};3 X 50 UG
     Route: 064
     Dates: start: 20201201, end: 20201201

REACTIONS (4)
  - Brain death [Fatal]
  - Foetal exposure during pregnancy [Unknown]
  - Neonatal hypoxia [Fatal]
  - Foetal heart rate decreased [Fatal]

NARRATIVE: CASE EVENT DATE: 202012
